FAERS Safety Report 8965654 (Version 1)
Quarter: 2012Q4

REPORT INFORMATION
  Report Type: Spontaneous
  Country: US (occurrence: None)
  Receive Date: 20121212
  Receipt Date: 20121212
  Transmission Date: 20130627
  Serious: Yes (Hospitalization)
  Sender: FDA-Public Use
  Company Number: None

PATIENT
  Sex: Male
  Weight: 12.8 kg

DRUGS (6)
  1. CYCLOPHOSPHAMIDE [Suspect]
  2. DACTINOMYCIN [Suspect]
  3. G-CSF [Suspect]
  4. IRINOTECAN [Suspect]
  5. MESNA [Suspect]
  6. VINCRISTINE SULFATE [Suspect]

REACTIONS (5)
  - Gastric ulcer [None]
  - Gastritis [None]
  - Gastrointestinal haemorrhage [None]
  - Duodenitis [None]
  - Radiation injury [None]
